FAERS Safety Report 9863106 (Version 1)
Quarter: 2014Q1

REPORT INFORMATION
  Report Type: Spontaneous
  Country: US (occurrence: US)
  Receive Date: 20140203
  Receipt Date: 20140203
  Transmission Date: 20141002
  Serious: No
  Sender: FDA-Public Use
  Company Number: US-TEVA-460246USA

PATIENT
  Sex: Female
  Weight: 136.2 kg

DRUGS (2)
  1. PARAGARD 380A [Suspect]
     Indication: CONTRACEPTION
     Route: 015
     Dates: start: 200409
  2. WARFARIN [Concomitant]
     Indication: THROMBOSIS

REACTIONS (4)
  - Hypersensitivity [Not Recovered/Not Resolved]
  - Urticaria [Not Recovered/Not Resolved]
  - Acne [Not Recovered/Not Resolved]
  - Skin disorder [Not Recovered/Not Resolved]
